FAERS Safety Report 19603840 (Version 1)
Quarter: 2021Q3

REPORT INFORMATION
  Report Type: Report from Study
  Country: AU (occurrence: AU)
  Receive Date: 20210723
  Receipt Date: 20210723
  Transmission Date: 20211014
  Serious: Yes (Other)
  Sender: FDA-Public Use
  Company Number: AU-ASTRAZENECA-2021A626351

PATIENT

DRUGS (1)
  1. FORXIGA [Suspect]
     Active Substance: DAPAGLIFLOZIN
     Indication: CARDIAC FAILURE
     Route: 048

REACTIONS (4)
  - Renal failure [Unknown]
  - Euglycaemic diabetic ketoacidosis [Unknown]
  - Urinary tract infection [Unknown]
  - Urinary tract candidiasis [Unknown]
